FAERS Safety Report 22039275 (Version 2)
Quarter: 2023Q1

REPORT INFORMATION
  Report Type: Spontaneous
  Country: GB (occurrence: GB)
  Receive Date: 20230227
  Receipt Date: 20230307
  Transmission Date: 20230418
  Serious: Yes (Other)
  Sender: FDA-Public Use
  Company Number: None

PATIENT
  Age: 89 Year
  Sex: Female

DRUGS (2)
  1. VENLAFAXINE [Suspect]
     Active Substance: VENLAFAXINE HYDROCHLORIDE
     Indication: Mental disorder
     Dosage: DOSE REDUCED FROM 225MG OD TO 150MG OD ALTERNATING WITH 75MG OD
     Route: 065
     Dates: start: 2003
  2. ZOPICLONE [Concomitant]
     Active Substance: ZOPICLONE
     Indication: Sleep disorder
     Dosage: UNKNOWN
     Route: 065

REACTIONS (6)
  - Blood pressure abnormal [Recovering/Resolving]
  - Haematochezia [Recovering/Resolving]
  - Insomnia [Recovering/Resolving]
  - Fall [Recovering/Resolving]
  - Memory impairment [Recovering/Resolving]
  - Restlessness [Recovering/Resolving]

NARRATIVE: CASE EVENT DATE: 20200101
